FAERS Safety Report 17078076 (Version 1)
Quarter: 2019Q4

REPORT INFORMATION
  Report Type: Spontaneous
  Country: IN (occurrence: IN)
  Receive Date: 20191126
  Receipt Date: 20191126
  Transmission Date: 20200122
  Serious: Yes (Hospitalization, Other)
  Sender: FDA-Public Use
  Company Number: IN-CASPER PHARMA LLC-2019CAS000604

PATIENT
  Age: 18 Year
  Sex: Male

DRUGS (3)
  1. NEOMYCIN, POLYMYXIN, BACITRACIN, HC [Suspect]
     Active Substance: BACITRACIN ZINC\HYDROCORTISONE\NEOMYCIN SULFATE\POLYMYXIN B SULFATE
     Indication: COLITIS ULCERATIVE
     Dosage: 100 MILLIGRAM SIX TIMES AN HOUR
     Route: 042
  2. OFLOXACIN. [Concomitant]
     Active Substance: OFLOXACIN
     Indication: COLITIS ULCERATIVE
     Dosage: UNK
     Route: 065
  3. METRONIDAZOLE. [Concomitant]
     Active Substance: METRONIDAZOLE
     Indication: COLITIS ULCERATIVE
     Dosage: UNK
     Route: 065

REACTIONS (1)
  - Pancreatitis acute [Recovered/Resolved]
